FAERS Safety Report 7484078-7 (Version None)
Quarter: 2011Q2

REPORT INFORMATION
  Report Type: 
  Country: None (occurrence: None)
  Receive Date: 20110513
  Receipt Date: 20110513
  Transmission Date: 20111010
  Serious: Yes (Life-Threatening)
  Sender: FDA-Public Use
  Company Number: None

PATIENT
  Age: 39 Year
  Sex: Female
  Weight: 79.3795 kg

DRUGS (1)
  1. REDUX [Suspect]
     Indication: OBESITY
     Dosage: DAILY PO
     Route: 048

REACTIONS (7)
  - LOSS OF CONSCIOUSNESS [None]
  - TRICUSPID VALVE INCOMPETENCE [None]
  - CARDIAC DISORDER [None]
  - SYNCOPE [None]
  - PRODUCT QUALITY ISSUE [None]
  - NERVOUS SYSTEM DISORDER [None]
  - HYPOTENSION [None]
